FAERS Safety Report 7338835-8 (Version None)
Quarter: 2011Q1

REPORT INFORMATION
  Report Type: 
  Country: None (occurrence: None)
  Receive Date: 20110210
  Receipt Date: 20110113
  Transmission Date: 20110831
  Serious: No
  Sender: FDA-Public Use
  Company Number: 1000018161

PATIENT
  Age: 45 Year
  Sex: Female

DRUGS (1)
  1. SAVELLA [Suspect]
     Dosage: ORAL
     Route: 048

REACTIONS (4)
  - NAUSEA [None]
  - HEADACHE [None]
  - VOMITING [None]
  - PAIN [None]
